FAERS Safety Report 10655125 (Version 1)
Quarter: 2014Q4

REPORT INFORMATION
  Report Type: Spontaneous
  Country: VN (occurrence: VN)
  Receive Date: 20141216
  Receipt Date: 20141216
  Transmission Date: 20150529
  Serious: Yes (Death)
  Sender: FDA-Public Use
  Company Number: VN-ASTELLAS-2014US020264

PATIENT
  Age: 67 Year
  Sex: Male

DRUGS (1)
  1. ERLOTINIB [Suspect]
     Active Substance: ERLOTINIB
     Indication: LUNG CANCER METASTATIC
     Dosage: UNK, UNKNOWN FREQ.
     Route: 065
     Dates: start: 20120610

REACTIONS (1)
  - Death [Fatal]

NARRATIVE: CASE EVENT DATE: 20130620
